FAERS Safety Report 14480051 (Version 2)
Quarter: 2018Q1

REPORT INFORMATION
  Report Type: Spontaneous
  Country: US (occurrence: US)
  Receive Date: 20180202
  Receipt Date: 20180305
  Transmission Date: 20180509
  Serious: Yes (Other)
  Sender: FDA-Public Use
  Company Number: US-ASTELLAS-2018US003098

PATIENT
  Sex: Male

DRUGS (2)
  1. XTANDI [Suspect]
     Active Substance: ENZALUTAMIDE
     Route: 048
  2. XTANDI [Suspect]
     Active Substance: ENZALUTAMIDE
     Indication: PROSTATE CANCER
     Route: 048
     Dates: start: 20171226

REACTIONS (5)
  - Asthenia [Recovering/Resolving]
  - Inappropriate schedule of drug administration [Unknown]
  - Arthritis [Unknown]
  - Viral infection [Recovering/Resolving]
  - Abdominal discomfort [Recovering/Resolving]
